FAERS Safety Report 12712781 (Version 3)
Quarter: 2016Q4

REPORT INFORMATION
  Report Type: Spontaneous
  Country: US (occurrence: US)
  Receive Date: 20160902
  Receipt Date: 20161122
  Transmission Date: 20170207
  Serious: Yes (Hospitalization, Other)
  Sender: FDA-Public Use
  Company Number: US-SAOL THERAPEUTICS-2016SAO00424

PATIENT
  Age: 18 Year
  Sex: Male
  Weight: 64.4 kg

DRUGS (6)
  1. LIORESAL [Suspect]
     Active Substance: BACLOFEN
     Indication: HEAD INJURY
     Dosage: 475 ?G, \DAY
  2. BACLOFEN. [Suspect]
     Active Substance: BACLOFEN
     Route: 048
  3. LIORESAL [Suspect]
     Active Substance: BACLOFEN
     Dosage: 495.3 ?G, \DAY
     Dates: start: 20160804
  4. LIORESAL [Suspect]
     Active Substance: BACLOFEN
     Dosage: 450 ?G \DAY
     Dates: start: 2016
  5. MORPHINE [Suspect]
     Active Substance: MORPHINE
     Dosage: UNKNOWN
  6. LIORESAL [Suspect]
     Active Substance: BACLOFEN
     Indication: MUSCLE SPASTICITY
     Dosage: 451.8 ?G, \DAY
     Dates: start: 20160804, end: 20160804

REACTIONS (11)
  - Implant site infection [Unknown]
  - Device occlusion [Recovered/Resolved]
  - Unevaluable event [Unknown]
  - Blood creatine phosphokinase increased [Recovered/Resolved]
  - Therapeutic product ineffective [Unknown]
  - Device battery issue [Unknown]
  - Overdose [Unknown]
  - Implant site erosion [Unknown]
  - Drug withdrawal syndrome [Recovered/Resolved]
  - Unevaluable event [Unknown]
  - Underdose [Recovering/Resolving]

NARRATIVE: CASE EVENT DATE: 2016
